FAERS Safety Report 10339068 (Version 2)
Quarter: 2014Q3

REPORT INFORMATION
  Report Type: Spontaneous
  Country: US (occurrence: US)
  Receive Date: 20140724
  Receipt Date: 20140807
  Transmission Date: 20150326
  Serious: Yes (Other)
  Sender: FDA-Public Use
  Company Number: US-BAYER-2014-105007

PATIENT
  Age: 89 Year
  Sex: Female
  Weight: 68 kg

DRUGS (3)
  1. ALEVE [Suspect]
     Active Substance: NAPROXEN SODIUM
     Indication: JOINT STIFFNESS
     Dosage: 1 DF, PRN
     Route: 048
     Dates: start: 2013, end: 20140707
  2. ALEVE [Suspect]
     Active Substance: NAPROXEN SODIUM
     Indication: ARTHRITIS
     Dosage: 1 DF, PRN
     Route: 048
     Dates: start: 2013, end: 20140707
  3. LASIX [Concomitant]
     Active Substance: FUROSEMIDE

REACTIONS (5)
  - Incorrect drug administration duration [Unknown]
  - Drug ineffective [None]
  - Occult blood positive [None]
  - Faeces discoloured [Recovered/Resolved]
  - Dry mouth [Not Recovered/Not Resolved]

NARRATIVE: CASE EVENT DATE: 2013
